FAERS Safety Report 4774745-8 (Version None)
Quarter: 2005Q3

REPORT INFORMATION
  Report Type: 
  Country: None (occurrence: None)
  Receive Date: 20050921
  Receipt Date: 20050906
  Transmission Date: 20060218
  Serious: Yes (Hospitalization)
  Sender: FDA-Public Use
  Company Number: SE-GLAXOSMITHKLINE-B0393633A

PATIENT
  Age: 47 Year
  Sex: Female

DRUGS (15)
  1. ZOVIRAX [Suspect]
     Indication: HERPES ZOSTER
     Dosage: 16MG PER DAY
     Route: 048
     Dates: start: 19941025, end: 19941102
  2. TEGRETOL [Concomitant]
  3. KALCITENA [Concomitant]
  4. LEVAXIN [Concomitant]
  5. TRYPTIZOL [Concomitant]
  6. RESONIUM [Concomitant]
  7. ORALOVITE [Concomitant]
  8. BRUFEN [Concomitant]
  9. ZINACEF [Concomitant]
  10. EMGESAN [Concomitant]
  11. MORPHINE [Concomitant]
  12. RECORMON [Concomitant]
  13. LOSEC [Concomitant]
  14. ORELOX [Concomitant]
  15. ANAESTHETIC [Concomitant]

REACTIONS (3)
  - ANXIETY [None]
  - SOMNOLENCE [None]
  - VOMITING [None]
